FAERS Safety Report 13136057 (Version 3)
Quarter: 2017Q4

REPORT INFORMATION
  Report Type: Report from Study
  Country: DE (occurrence: DE)
  Receive Date: 20170120
  Receipt Date: 20171109
  Transmission Date: 20180320
  Serious: Yes (Hospitalization)
  Sender: FDA-Public Use
  Company Number: DE-SA-2016SA042009

PATIENT
  Sex: Male

DRUGS (1)
  1. LEMTRADA [Suspect]
     Active Substance: ALEMTUZUMAB
     Indication: MULTIPLE SCLEROSIS
     Route: 041
     Dates: start: 20150727, end: 20150731

REACTIONS (9)
  - Dysarthria [Recovered/Resolved]
  - Cognitive disorder [Recovered/Resolved]
  - Quadriparesis [Recovered/Resolved]
  - Multiple sclerosis relapse [Recovering/Resolving]
  - Nervous system disorder [Recovering/Resolving]
  - Nuclear magnetic resonance imaging abnormal [Recovered/Resolved]
  - Apraxia [Recovered/Resolved]
  - Gait disturbance [Recovered/Resolved]
  - Cognitive disorder [Recovering/Resolving]

NARRATIVE: CASE EVENT DATE: 2015
